FAERS Safety Report 23058007 (Version 2)
Quarter: 2023Q4

REPORT INFORMATION
  Report Type: Spontaneous
  Country: DE (occurrence: DE)
  Receive Date: 20231012
  Receipt Date: 20231026
  Transmission Date: 20240109
  Serious: Yes (Other)
  Sender: FDA-Public Use
  Company Number: DE-002147023-NVSC2023DE152891

PATIENT
  Age: 43 Year
  Sex: Female
  Weight: 55 kg

DRUGS (5)
  1. KESIMPTA [Suspect]
     Active Substance: OFATUMUMAB
     Indication: Relapsing-remitting multiple sclerosis
     Dosage: UNK
     Route: 065
     Dates: start: 20230308
  2. DALFAMPRIDINE [Concomitant]
     Active Substance: DALFAMPRIDINE
     Indication: Muscle spasticity
     Dosage: 10 MG, QD
     Route: 065
  3. IBUDILAST [Concomitant]
     Active Substance: IBUDILAST
     Indication: Muscle spasticity
     Dosage: 100 MG, QD
     Route: 065
     Dates: start: 20230515
  4. BACLOFEN [Concomitant]
     Active Substance: BACLOFEN
     Indication: Muscle spasticity
     Dosage: 10 MG, QMO
     Route: 065
  5. SODIUM PROPIONATE [Concomitant]
     Active Substance: SODIUM PROPIONATE
     Indication: Nutritional supplementation
     Dosage: 1000 MG, QMO (PROPICUM)
     Route: 065
     Dates: start: 202002

REACTIONS (1)
  - Lymphopenia [Not Recovered/Not Resolved]

NARRATIVE: CASE EVENT DATE: 20230328
